FAERS Safety Report 21689060 (Version 2)
Quarter: 2022Q4

REPORT INFORMATION
  Report Type: Spontaneous
  Country: CH (occurrence: None)
  Receive Date: 20221206
  Receipt Date: 20221213
  Transmission Date: 20230112
  Serious: Yes (Hospitalization)
  Sender: FDA-Public Use
  Company Number: 2022A365043

PATIENT
  Age: 19 Year
  Sex: Female
  Weight: 82 kg

DRUGS (10)
  1. TEZSPIRE [Suspect]
     Active Substance: TEZEPELUMAB-EKKO
     Route: 058
     Dates: start: 202208, end: 202211
  2. PULMICORT TURBUHALER [Concomitant]
     Active Substance: BUDESONIDE
     Route: 065
  3. FOSTER [Concomitant]
     Active Substance: BECLOMETHASONE\FORMOTEROL
  4. ALBUTEROL SULFATE\IPRATROPIUM BROMIDE [Concomitant]
     Active Substance: ALBUTEROL SULFATE\IPRATROPIUM BROMIDE
  5. BILASTIN [Concomitant]
  6. PANTOPRAZOLE SODIUM [Concomitant]
     Active Substance: PANTOPRAZOLE SODIUM
  7. LISINOPRIL [Concomitant]
     Active Substance: LISINOPRIL
  8. SPIRIVA [Concomitant]
     Active Substance: TIOTROPIUM BROMIDE MONOHYDRATE
  9. CLEMASTINE [Concomitant]
     Active Substance: CLEMASTINE
     Indication: Asthma
  10. CLEMASTINE [Concomitant]
     Active Substance: CLEMASTINE
     Indication: Seasonal allergy

REACTIONS (6)
  - Decreased appetite [Unknown]
  - Respiratory tract infection [Unknown]
  - Asthma [Unknown]
  - Weight decreased [Unknown]
  - Pyrexia [Unknown]
  - Myalgia [Unknown]
